FAERS Safety Report 5293492-X (Version None)
Quarter: 2007Q2

REPORT INFORMATION
  Report Type: 
  Country: None (occurrence: None)
  Receive Date: 20070411
  Receipt Date: 20070403
  Transmission Date: 20071010
  Serious: Yes (Hospitalization)
  Sender: FDA-Public Use
  Company Number: US-GLAXOSMITHKLINE-A0643427A

PATIENT
  Age: 77 Year
  Sex: Male
  Weight: 57.5 kg

DRUGS (1)
  1. LAPATINIB [Suspect]
     Indication: ADENOCARCINOMA
     Dosage: 1000MG PER DAY
     Route: 048
     Dates: start: 20061004

REACTIONS (12)
  - ABDOMINAL PAIN [None]
  - CHILLS [None]
  - DECREASED APPETITE [None]
  - DIARRHOEA [None]
  - DISEASE PROGRESSION [None]
  - DYSPNOEA [None]
  - FATIGUE [None]
  - HAEMOGLOBIN DECREASED [None]
  - MELAENA [None]
  - OEDEMA PERIPHERAL [None]
  - PLEURAL EFFUSION [None]
  - PULMONARY EMBOLISM [None]
